FAERS Safety Report 21304231 (Version 1)
Quarter: 2022Q3

REPORT INFORMATION
  Report Type: Spontaneous
  Country: US (occurrence: None)
  Receive Date: 20220907
  Receipt Date: 20220907
  Transmission Date: 20221026
  Serious: No
  Sender: FDA-Public Use
  Company Number: US-ARIS GLOBAL-202107-1174

PATIENT
  Age: 79 Year
  Sex: Female

DRUGS (18)
  1. OXERVATE [Suspect]
     Active Substance: CENEGERMIN-BKBJ
     Indication: Neurotrophic keratopathy
     Route: 047
     Dates: start: 20210608
  2. CEPHALEXIN [Concomitant]
     Active Substance: CEPHALEXIN
  3. BRIMONIDINE w/DORZOLAMIDE [Concomitant]
  4. TIMOLOL MALEATE [Concomitant]
     Active Substance: TIMOLOL MALEATE
  5. LUMIGAN [Concomitant]
     Active Substance: BIMATOPROST
  6. DUREZOL [Concomitant]
     Active Substance: DIFLUPREDNATE
  7. MUCINEX [Concomitant]
     Active Substance: GUAIFENESIN
  8. BIOTIN [Concomitant]
     Active Substance: BIOTIN
  9. ZINC [Concomitant]
     Active Substance: ZINC
  10. VITAMIN D3 [Concomitant]
     Active Substance: CHOLECALCIFEROL
  11. VITAMIN C [Concomitant]
     Active Substance: ASCORBIC ACID
  12. IPRATROPIUM [Concomitant]
     Active Substance: IPRATROPIUM
  13. VALACYCLOVIR [Concomitant]
     Active Substance: VALACYCLOVIR HYDROCHLORIDE
  14. PREMARIN [Concomitant]
     Active Substance: ESTROGENS, CONJUGATED
  15. PANTOPRAZOLE SODIUM [Concomitant]
     Active Substance: PANTOPRAZOLE SODIUM
  16. HYDROCHLOROTHIAZIDE\IRBESARTAN [Concomitant]
     Active Substance: HYDROCHLOROTHIAZIDE\IRBESARTAN
  17. HYDROCHLOROTHIAZIDE [Concomitant]
     Active Substance: HYDROCHLOROTHIAZIDE
  18. GABAPENTIN [Concomitant]
     Active Substance: GABAPENTIN

REACTIONS (1)
  - Eyelid pain [Unknown]
